FAERS Safety Report 17495983 (Version 1)
Quarter: 2020Q1

REPORT INFORMATION
  Report Type: Spontaneous
  Country: US (occurrence: US)
  Receive Date: 20200304
  Receipt Date: 20200304
  Transmission Date: 20200409
  Serious: No
  Sender: FDA-Public Use
  Company Number: US-PFIZER INC-2020094301

PATIENT
  Age: 34 Year
  Sex: Female
  Weight: 79.38 kg

DRUGS (5)
  1. LYRICA [Suspect]
     Active Substance: PREGABALIN
     Dosage: 200 MG, 3X/DAY, (DOSE INCREASED FURTHER AROUND SPRING OR SUMMER 2019)
     Route: 048
     Dates: start: 2019
  2. LYRICA [Suspect]
     Active Substance: PREGABALIN
     Indication: TRIGEMINAL NEURALGIA
     Dosage: 50 MG, DAILY (50 MG DAILY EVERY 3 DAYS)
     Route: 048
     Dates: start: 201603
  3. LYRICA [Suspect]
     Active Substance: PREGABALIN
     Dosage: 150 MG, 3X/DAY (TITRATED UP INITIALLY BY 50MG EVERY 3 DAYS UNTIL 150MG 3 TIMES DAILY PRESCRIBED)
     Route: 048
  4. CYMBALTA [Suspect]
     Active Substance: DULOXETINE HYDROCHLORIDE
     Dosage: 120 MG, DAILY, (60MG CAPSULE-2 CAPSULES TAKEN BY MOUTH DAILY)
     Route: 048
     Dates: start: 201603
  5. CYMBALTA [Suspect]
     Active Substance: DULOXETINE HYDROCHLORIDE
     Indication: TRIGEMINAL NEURALGIA
     Dosage: UNK, (PREVIOUS DOSE DETAILS UNKNOWN)
     Route: 048

REACTIONS (2)
  - Amnesia [Recovering/Resolving]
  - Balance disorder [Unknown]
